FAERS Safety Report 12967855 (Version 1)
Quarter: 2016Q4

REPORT INFORMATION
  Report Type: Spontaneous
  Country: US (occurrence: US)
  Receive Date: 20161123
  Receipt Date: 20161123
  Transmission Date: 20170207
  Serious: No
  Sender: FDA-Public Use
  Company Number: US-PFIZER INC-2016536628

PATIENT
  Sex: Female

DRUGS (3)
  1. LYRICA [Suspect]
     Active Substance: PREGABALIN
     Indication: INTERVERTEBRAL DISC DEGENERATION
     Dosage: 50 MG, TWICE A DAY
  2. LYRICA [Suspect]
     Active Substance: PREGABALIN
     Indication: STENOSIS
     Dosage: 50 MG, DAILY
  3. TYLENOL [Concomitant]
     Active Substance: ACETAMINOPHEN
     Dosage: UNK

REACTIONS (1)
  - Drug ineffective [Unknown]
